FAERS Safety Report 18584071 (Version 2)
Quarter: 2021Q1

REPORT INFORMATION
  Report Type: Report from Study
  Country: None (occurrence: US)
  Receive Date: 20201207
  Receipt Date: 20210309
  Transmission Date: 20210419
  Serious: Yes (Other)
  Sender: FDA-Public Use
  Company Number: US-ABBVIE-20K-163-3677546-00

PATIENT
  Sex: Female

DRUGS (2)
  1. HUMIRA [Suspect]
     Active Substance: ADALIMUMAB
     Indication: CROHN^S DISEASE
     Route: 058
     Dates: end: 2020
  2. HUMIRA [Suspect]
     Active Substance: ADALIMUMAB
     Indication: CROHN^S DISEASE
     Dosage: CITRATE FREE
     Route: 058
     Dates: start: 2020

REACTIONS (5)
  - Injection site pain [Recovered/Resolved]
  - Road traffic accident [Unknown]
  - Obstruction gastric [Not Recovered/Not Resolved]
  - Ligament rupture [Not Recovered/Not Resolved]
  - Large intestinal obstruction [Not Recovered/Not Resolved]
